FAERS Safety Report 8416898-6 (Version None)
Quarter: 2012Q2

REPORT INFORMATION
  Report Type: 
  Country: None (occurrence: None)
  Receive Date: 20120606
  Receipt Date: 20120530
  Transmission Date: 20120825
  Serious: Yes (Death)
  Sender: FDA-Public Use
  Company Number: PHHY2012FR048282

PATIENT

DRUGS (6)
  1. MYCOPHENOLATE MOFETIL [Suspect]
     Indication: RENAL TRANSPLANT
     Dosage: 2160 MG/DAY N TWO DIVIDED DOSES TO WEEK 6 POST-TRANSPLANTATION
  2. METHYLPREDNISOLONE [Concomitant]
     Dosage: 250 MG, DAY-1 OF TRANSPLANTATION
     Route: 042
  3. CYCLOSPORINE [Concomitant]
     Dosage: 3 MG/KG, UNK
  4. MYCOPHENOLATE MOFETIL [Suspect]
     Dosage: 1440 MG/DAY
  5. INTERLEUKINS [Concomitant]
  6. METHYLPREDNISOLONE [Concomitant]
     Dosage: 250 MG,ON DDAY 0 THE DAY OF TRANSPLANTATION

REACTIONS (1)
  - CARDIAC DISORDER [None]
